FAERS Safety Report 8615661-0 (Version None)
Quarter: 2012Q3

REPORT INFORMATION
  Report Type: 
  Country: None (occurrence: None)
  Receive Date: 20120823
  Receipt Date: 20120814
  Transmission Date: 20120928
  Serious: Yes (Other)
  Sender: FDA-Public Use
  Company Number: US-009507513-0210USA00005

PATIENT

DRUGS (6)
  1. THERAPY UNSPECIFIED [Concomitant]
  2. FOSAMAX [Suspect]
     Indication: OSTEOPOROSIS
     Dosage: 70 MG, QW
     Route: 048
     Dates: start: 20020901, end: 20091201
  3. FOSAMAX [Suspect]
     Indication: OSTEOPOROSIS PROPHYLAXIS
  4. CELEXA [Concomitant]
  5. ROFECOXIB [Concomitant]
  6. TYLENOL [Concomitant]

REACTIONS (5)
  - JOINT STIFFNESS [None]
  - FEMUR FRACTURE [None]
  - ARTHRALGIA [None]
  - LOW TURNOVER OSTEOPATHY [None]
  - PAIN IN EXTREMITY [None]
